FAERS Safety Report 14250982 (Version 1)
Quarter: 2017Q4

REPORT INFORMATION
  Report Type: Spontaneous
  Country: JP (occurrence: JP)
  Receive Date: 20171205
  Receipt Date: 20171205
  Transmission Date: 20180321
  Serious: Yes (Hospitalization, Other)
  Sender: FDA-Public Use
  Company Number: PHHY2017JP177105

PATIENT
  Age: 68 Year
  Sex: Female

DRUGS (1)
  1. VORICONAZOLE. [Suspect]
     Active Substance: VORICONAZOLE
     Indication: BRONCHOPULMONARY ASPERGILLOSIS
     Dosage: UNK
     Route: 065

REACTIONS (6)
  - Rash generalised [Recovered/Resolved]
  - Drug reaction with eosinophilia and systemic symptoms [Unknown]
  - Tonsillitis bacterial [Unknown]
  - Pyrexia [Recovered/Resolved]
  - Face oedema [Unknown]
  - Agranulocytosis [Unknown]
